FAERS Safety Report 8228182-4 (Version None)
Quarter: 2012Q1

REPORT INFORMATION
  Report Type: 
  Country: None (occurrence: None)
  Receive Date: 20120322
  Receipt Date: 20111227
  Transmission Date: 20120608
  Serious: Yes (Hospitalization)
  Sender: FDA-Public Use
  Company Number: US-BRISTOL-MYERS SQUIBB COMPANY-16280034

PATIENT
  Age: 7 Decade
  Sex: Male

DRUGS (2)
  1. ERBITUX [Suspect]
     Indication: HEAD AND NECK CANCER METASTATIC
  2. DECADRON [Concomitant]
     Indication: PREMEDICATION

REACTIONS (2)
  - PRURITUS [None]
  - BLOOD PRESSURE DECREASED [None]
